FAERS Safety Report 19316217 (Version 2)
Quarter: 2021Q4

REPORT INFORMATION
  Report Type: Spontaneous
  Country: US (occurrence: US)
  Receive Date: 20210527
  Receipt Date: 20211130
  Transmission Date: 20220303
  Serious: No
  Sender: FDA-Public Use
  Company Number: US-NOVARTISTESTPH-NVSC2021US112300

PATIENT

DRUGS (1)
  1. KESIMPTA [Suspect]
     Active Substance: OFATUMUMAB
     Indication: Relapsing-remitting multiple sclerosis
     Dosage: 20 MG (3 LOADING DOSES SPACED 1 WEEK APART)
     Route: 058
     Dates: start: 20210512, end: 20210515

REACTIONS (1)
  - Inappropriate schedule of product administration [Unknown]
